FAERS Safety Report 5530570-1 (Version None)
Quarter: 2007Q4

REPORT INFORMATION
  Report Type: 
  Country: None (occurrence: None)
  Receive Date: 20071130
  Receipt Date: 20071127
  Transmission Date: 20080405
  Serious: Yes (Other)
  Sender: FDA-Public Use
  Company Number: GB-BRISTOL-MYERS SQUIBB COMPANY-13941059

PATIENT
  Age: 58 Year
  Sex: Male

DRUGS (3)
  1. CETUXIMAB [Suspect]
     Indication: COLORECTAL CANCER
     Route: 042
     Dates: start: 20061101, end: 20061101
  2. OXALIPLATIN [Suspect]
     Indication: COLORECTAL CANCER
     Route: 042
     Dates: start: 20061101, end: 20061101
  3. FLUOROURACIL [Suspect]
     Indication: COLORECTAL CANCER
     Dosage: 800MG,IV BOLUS,
     Route: 042
     Dates: start: 20061101, end: 20061101

REACTIONS (3)
  - ACNE [None]
  - DIARRHOEA [None]
  - MELAENA [None]
